FAERS Safety Report 8396255-1 (Version None)
Quarter: 2012Q2

REPORT INFORMATION
  Report Type: 
  Country: None (occurrence: None)
  Receive Date: 20120530
  Receipt Date: 20120516
  Transmission Date: 20120825
  Serious: Yes (Other)
  Sender: FDA-Public Use
  Company Number: US-ROCHE-1018484

PATIENT
  Sex: Male
  Weight: 72.64 kg

DRUGS (1)
  1. ACCUTANE [Suspect]
     Indication: ACNE
     Route: 048
     Dates: start: 20000101, end: 20010101

REACTIONS (9)
  - INFLAMMATORY BOWEL DISEASE [None]
  - DRY SKIN [None]
  - UPPER LIMB FRACTURE [None]
  - ANXIETY [None]
  - EPISTAXIS [None]
  - COLITIS ULCERATIVE [None]
  - CHEILITIS [None]
  - CHAPPED LIPS [None]
  - XEROSIS [None]
